FAERS Safety Report 5798743-0 (Version None)
Quarter: 2008Q3

REPORT INFORMATION
  Report Type: 
  Country: None (occurrence: None)
  Receive Date: 20080702
  Receipt Date: 20080619
  Transmission Date: 20090109
  Serious: Yes (Other)
  Sender: FDA-Public Use
  Company Number: JP-AMGEN-US291128

PATIENT
  Sex: Female
  Weight: 71.27 kg

DRUGS (7)
  1. ENBREL [Suspect]
     Indication: RHEUMATOID ARTHRITIS
     Route: 058
     Dates: start: 19981223, end: 19990514
  2. HYDROCHLOROTHIAZIDE [Concomitant]
  3. LEVOTHYROXINE SODIUM [Concomitant]
  4. NADOLOL [Concomitant]
  5. LISINOPRIL [Concomitant]
  6. METHOTREXATE [Concomitant]
     Dates: start: 19980101, end: 19990202
  7. DYAZIDE [Concomitant]

REACTIONS (6)
  - BACK PAIN [None]
  - BLOOD CREATININE INCREASED [None]
  - COSTOVERTEBRAL ANGLE TENDERNESS [None]
  - GRANULOMA [None]
  - LYMPHADENOPATHY [None]
  - RHEUMATOID ARTHRITIS [None]
